FAERS Safety Report 7628238-0 (Version None)
Quarter: 2011Q3

REPORT INFORMATION
  Report Type: 
  Country: None (occurrence: None)
  Receive Date: 20110720
  Receipt Date: 20110720
  Transmission Date: 20111222
  Serious: No
  Sender: FDA-Public Use
  Company Number: None

PATIENT
  Sex: Female

DRUGS (1)
  1. KETOROLAC TROMETH 0.5% DROPS [Suspect]
     Indication: UVEITIS
     Dosage: OPHTHALMIC
     Route: 047
     Dates: start: 20100702

REACTIONS (1)
  - DRUG INEFFECTIVE [None]
